FAERS Safety Report 21492134 (Version 2)
Quarter: 2022Q4

REPORT INFORMATION
  Report Type: Spontaneous
  Country: US (occurrence: US)
  Receive Date: 20221021
  Receipt Date: 20221027
  Transmission Date: 20230112
  Serious: No
  Sender: FDA-Public Use
  Company Number: US-AMGEN-USASP2022180173

PATIENT
  Age: 60 Year
  Sex: Female

DRUGS (1)
  1. AIMOVIG [Suspect]
     Active Substance: ERENUMAB-AOOE
     Indication: Migraine
     Dosage: 140 MILLIGRAM, QMO
     Route: 065
     Dates: start: 202209

REACTIONS (3)
  - Drug dose omission by device [Unknown]
  - Device difficult to use [Unknown]
  - Illness [Not Recovered/Not Resolved]

NARRATIVE: CASE EVENT DATE: 20221001
